FAERS Safety Report 4969036-6 (Version None)
Quarter: 2006Q2

REPORT INFORMATION
  Report Type: 
  Country: None (occurrence: None)
  Receive Date: 20060405
  Receipt Date: 20060322
  Transmission Date: 20061013
  Serious: Yes (Other)
  Sender: FDA-Public Use
  Company Number: 2006US-01863

PATIENT
  Age: 33 Year
  Sex: Female

DRUGS (1)
  1. ISOTRETINOIN [Suspect]
     Dosage: ORAL
     Route: 048

REACTIONS (4)
  - CHEILITIS [None]
  - DISEASE RECURRENCE [None]
  - HERPES SIMPLEX [None]
  - PHOTOSENSITIVITY REACTION [None]
